FAERS Safety Report 9812695 (Version 1)
Quarter: 2014Q1

REPORT INFORMATION
  Report Type: Spontaneous
  Country: US (occurrence: US)
  Receive Date: 20140113
  Receipt Date: 20140113
  Transmission Date: 20141002
  Serious: Yes (Death)
  Sender: FDA-Public Use
  Company Number: US-BAYER-2014-004883

PATIENT
  Age: 58 Year
  Sex: Male

DRUGS (9)
  1. DIPHENHYDRAMINE HYDROCHLORIDE [Suspect]
     Route: 048
  2. AMLODIPINE [Suspect]
     Route: 048
  3. METOPROLOL [Suspect]
     Route: 048
  4. ACETAMINOPHEN W/OXYCODONE [Suspect]
     Route: 048
  5. AMITRIPTYLINE [Suspect]
     Route: 048
  6. GABAPENTIN [Suspect]
     Route: 048
  7. TEMAZEPAM [Suspect]
     Route: 048
  8. ALPRAZOLAM [Suspect]
     Route: 048
  9. ETHANOL [Suspect]
     Route: 048

REACTIONS (1)
  - Toxicity to various agents [Fatal]
